FAERS Safety Report 21449760 (Version 1)
Quarter: 2022Q4

REPORT INFORMATION
  Report Type: Spontaneous
  Country: GB (occurrence: GB)
  Receive Date: 20221013
  Receipt Date: 20221013
  Transmission Date: 20230113
  Serious: Yes (Hospitalization)
  Sender: FDA-Public Use
  Company Number: GB-TEVA-2022-GB-2082258

PATIENT
  Age: 48 Year
  Sex: Male

DRUGS (20)
  1. TRAMADOL [Suspect]
     Active Substance: TRAMADOL
     Indication: Analgesic therapy
     Dosage: INITIAL DOSE
     Route: 065
     Dates: start: 2020
  2. TRAMADOL [Suspect]
     Active Substance: TRAMADOL
     Dosage: DOSE RAPIDLY INCREASED TO 100MG REGULARLY 4 TIMES PER DAY/ DISCHARGED ON TRAMADOL 50MG AS REQUIRED
     Route: 065
     Dates: start: 2020
  3. BACLOFEN [Suspect]
     Active Substance: BACLOFEN
     Indication: Muscle spasticity
     Route: 037
  4. BACLOFEN [Suspect]
     Active Substance: BACLOFEN
     Route: 037
     Dates: start: 2020
  5. BACLOFEN [Suspect]
     Active Substance: BACLOFEN
     Route: 037
     Dates: start: 2020
  6. BACLOFEN [Suspect]
     Active Substance: BACLOFEN
     Route: 037
     Dates: start: 2020
  7. TIZANIDINE [Concomitant]
     Active Substance: TIZANIDINE
     Indication: Muscle spasticity
     Dosage: ON DAY OF PUMP REMOVAL
     Route: 048
     Dates: start: 2020
  8. TIZANIDINE [Concomitant]
     Active Substance: TIZANIDINE
     Dosage: 3 DAYS POSTSURGERY
     Route: 048
     Dates: start: 2020
  9. TEICOPLANIN [Concomitant]
     Active Substance: TEICOPLANIN
     Indication: Antibiotic therapy
     Route: 042
     Dates: start: 2020
  10. MEROPENEM [Concomitant]
     Active Substance: MEROPENEM
     Indication: Antibiotic therapy
     Route: 042
     Dates: start: 2020
  11. Ertapenum [Concomitant]
     Indication: Antibiotic therapy
     Route: 065
     Dates: start: 2020
  12. CLONAZEPAM [Concomitant]
     Active Substance: CLONAZEPAM
     Indication: Muscle spasticity
     Dosage: 2-3 DAYS PRIOR TO PUMP REMOVAL
     Route: 065
     Dates: start: 2020
  13. CLONAZEPAM [Concomitant]
     Active Substance: CLONAZEPAM
     Dosage: DAY OF PUMP REMOVAL/ THERAPY CONTINUED AS PER NEEDED
     Route: 065
     Dates: start: 2020
  14. CLONAZEPAM [Concomitant]
     Active Substance: CLONAZEPAM
     Dosage: AS REQUIRED AFTER 3 DAYS OF POSTSURGERY
     Route: 065
     Dates: start: 2020
  15. PROPOFOL [Concomitant]
     Active Substance: PROPOFOL
     Indication: Seizure prophylaxis
     Dosage: PROPOFOL: 1 %
     Route: 041
     Dates: start: 2020
  16. PROPOFOL [Concomitant]
     Active Substance: PROPOFOL
     Dosage: GRADUALLY TITRATED OVER 48 HOURS/ PROPOFOL: 1 %
     Route: 041
     Dates: start: 2020
  17. PROPOFOL [Concomitant]
     Active Substance: PROPOFOL
     Dosage: PROPOFOL: 1 %
     Route: 041
     Dates: start: 2020
  18. ACETAMINOPHEN [Concomitant]
     Active Substance: ACETAMINOPHEN
     Indication: Analgesic therapy
     Dosage: DAY OF PUMP REMOVAL AND 3 DAYS POSTSURGERY
     Route: 065
     Dates: start: 2020
  19. BACLOFEN [Concomitant]
     Active Substance: BACLOFEN
     Indication: Muscle spasticity
     Dosage: 30MG THREE TIMES DAILY 2-3 DAYS PRIOR TO PUMP REMOVAL
     Route: 048
  20. BACLOFEN [Concomitant]
     Active Substance: BACLOFEN
     Dosage: 30MG FOUR TIMES A DAY ON DAY OF PUMP REMOVAL AND 3 DAYS POST SURGERY
     Route: 048

REACTIONS (4)
  - Rebound effect [Recovering/Resolving]
  - Mental impairment [Unknown]
  - Muscle spasms [Recovering/Resolving]
  - Drug withdrawal syndrome [Recovering/Resolving]

NARRATIVE: CASE EVENT DATE: 20200101
